FAERS Safety Report 16056545 (Version 1)
Quarter: 2019Q2

REPORT INFORMATION
  Report Type: Spontaneous
  Country: US (occurrence: US)
  Receive Date: 20190309
  Receipt Date: 20190309
  Transmission Date: 20190711
  Serious: Yes (Other)
  Sender: FDA-Public Use
  Company Number: None

PATIENT
  Age: 44 Year
  Sex: Female
  Weight: 63 kg

DRUGS (2)
  1. CIPROFLOXACIN TABLETS 500MG [Suspect]
     Active Substance: CIPROFLOXACIN
     Indication: URINARY TRACT INFECTION
     Dosage: ?          QUANTITY:14 TABLET(S);?
     Route: 048
     Dates: start: 20180517, end: 20180517
  2. CIPROFLOXACIN TABLETS 500MG [Suspect]
     Active Substance: CIPROFLOXACIN
     Indication: PATHOGEN RESISTANCE
     Dosage: ?          QUANTITY:14 TABLET(S);?
     Route: 048
     Dates: start: 20180517, end: 20180517

REACTIONS (2)
  - Tendonitis [None]
  - Drug hypersensitivity [None]

NARRATIVE: CASE EVENT DATE: 20180517
